FAERS Safety Report 9173717 (Version 1)
Quarter: 2013Q1

REPORT INFORMATION
  Report Type: Spontaneous
  Country: JP (occurrence: JP)
  Receive Date: 20130320
  Receipt Date: 20130320
  Transmission Date: 20140127
  Serious: Yes (Other)
  Sender: FDA-Public Use
  Company Number: JP-ASTELLAS-2013JP004030

PATIENT
  Age: 65 Year
  Sex: Male

DRUGS (4)
  1. PROGRAF [Suspect]
     Indication: PROPHYLAXIS AGAINST GRAFT VERSUS HOST DISEASE
     Route: 065
  2. METHOTREXATE [Concomitant]
     Indication: PROPHYLAXIS AGAINST GRAFT VERSUS HOST DISEASE
     Route: 065
  3. FLUDARA [Concomitant]
     Indication: PREMEDICATION
     Route: 065
  4. BUSULFAN [Concomitant]
     Indication: PREMEDICATION
     Route: 042

REACTIONS (1)
  - Cholecystitis acute [Unknown]
